FAERS Safety Report 15076856 (Version 9)
Quarter: 2021Q4

REPORT INFORMATION
  Report Type: Spontaneous
  Country: JP (occurrence: JP)
  Receive Date: 20180627
  Receipt Date: 20211202
  Transmission Date: 20220303
  Serious: Yes (Hospitalization, Other)
  Sender: FDA-Public Use
  Company Number: JP-BRISTOL-MYERS SQUIBB COMPANY-BMS-2018-017888

PATIENT
  Age: 61 Year
  Sex: Male
  Weight: 50 kg

DRUGS (4)
  1. OPDIVO [Suspect]
     Active Substance: NIVOLUMAB
     Indication: Head and neck cancer
     Dosage: 3 MILLIGRAM/KILOGRAM, Q2WK
     Route: 041
     Dates: start: 20170713, end: 20171228
  2. CISPLATIN [Concomitant]
     Active Substance: CISPLATIN
     Indication: Head and neck cancer
     Dosage: UNK
     Route: 065
     Dates: start: 201604, end: 20180223
  3. FLUOROURACIL [Concomitant]
     Active Substance: FLUOROURACIL
     Indication: Head and neck cancer
     Dosage: UNK
     Route: 065
     Dates: start: 201604, end: 20180223
  4. CETUXIMAB [Concomitant]
     Active Substance: CETUXIMAB
     Indication: Head and neck cancer
     Dosage: UNK
     Route: 065
     Dates: start: 20171210, end: 20180223

REACTIONS (3)
  - Enteritis [Recovered/Resolved with Sequelae]
  - Malignant neoplasm progression [Unknown]
  - Metastases to pleura [Unknown]

NARRATIVE: CASE EVENT DATE: 20180111
